FAERS Safety Report 25079362 (Version 2)
Quarter: 2025Q1

REPORT INFORMATION
  Report Type: Spontaneous
  Country: JP (occurrence: JP)
  Receive Date: 20250314
  Receipt Date: 20250320
  Transmission Date: 20250409
  Serious: Yes (Other)
  Sender: MERCK SHARP & DOHME LLC
  Company Number: JP-009507513-2262739

PATIENT
  Age: 75 Year
  Sex: Male

DRUGS (3)
  1. KEYTRUDA [Suspect]
     Active Substance: PEMBROLIZUMAB
     Indication: Lung squamous cell carcinoma stage III
     Route: 041
     Dates: start: 202501, end: 202502
  2. GEMCITABINE [Suspect]
     Active Substance: GEMCITABINE
     Dates: start: 202501
  3. CISPLATIN [Suspect]
     Active Substance: CISPLATIN
     Dates: start: 202501

REACTIONS (5)
  - Full blood count decreased [Unknown]
  - Diabetes mellitus [Unknown]
  - Vomiting [Unknown]
  - Therapy partial responder [Unknown]
  - Platelet count decreased [Recovering/Resolving]

NARRATIVE: CASE EVENT DATE: 20250101
